FAERS Safety Report 8350107-1 (Version None)
Quarter: 2012Q2

REPORT INFORMATION
  Report Type: 
  Country: None (occurrence: None)
  Receive Date: 20120510
  Receipt Date: 20120501
  Transmission Date: 20120825
  Serious: Yes (Other)
  Sender: FDA-Public Use
  Company Number: CA-NAPPMUNDI-DEU-2012-0008910

PATIENT
  Age: 10 Year
  Sex: Male

DRUGS (4)
  1. MORPHINE SULFATE [Suspect]
     Indication: PERIOPERATIVE ANALGESIA
     Dosage: UNK
     Route: 065
  2. CODEINE [Suspect]
     Indication: POSTOPERATIVE ANALGESIA
     Route: 065
  3. FENTANYL CITRATE [Suspect]
     Indication: PERIOPERATIVE ANALGESIA
     Route: 065
  4. ZIPRASIDONE HCL [Suspect]
     Indication: PRODUCT USED FOR UNKNOWN INDICATION
     Route: 065

REACTIONS (1)
  - SEROTONIN SYNDROME [None]
